FAERS Safety Report 25723759 (Version 1)
Quarter: 2025Q3

REPORT INFORMATION
  Report Type: Spontaneous
  Country: EU (occurrence: EU)
  Receive Date: 20250825
  Receipt Date: 20250825
  Transmission Date: 20251020
  Serious: Yes (Hospitalization)
  Sender: NOVARTIS
  Company Number: EU-002147023-NVSC2025DE129818

PATIENT
  Sex: Female

DRUGS (1)
  1. RIBOCICLIB [Suspect]
     Active Substance: RIBOCICLIB
     Indication: Breast cancer
     Route: 065
     Dates: start: 202506

REACTIONS (5)
  - Erythema [Unknown]
  - Rash [Unknown]
  - Skin necrosis [Unknown]
  - Secretion discharge [Unknown]
  - Pain [Unknown]

NARRATIVE: CASE EVENT DATE: 20250808
